FAERS Safety Report 4654845-3 (Version None)
Quarter: 2005Q2

REPORT INFORMATION
  Report Type: 
  Country: None (occurrence: None)
  Receive Date: 20050505
  Receipt Date: 20050421
  Transmission Date: 20051028
  Serious: Yes (Death)
  Sender: FDA-Public Use
  Company Number: 2005S1002662

PATIENT
  Age: 78 Year
  Sex: Female

DRUGS (2)
  1. CLOZAPINE [Suspect]
     Indication: SCHIZOPHRENIA
     Dosage: 100 MG;HS;PO
     Route: 048
     Dates: start: 20011101, end: 20050301
  2. INSULIN [Concomitant]

REACTIONS (1)
  - DEATH [None]
